FAERS Safety Report 5779627-0 (Version None)
Quarter: 2008Q2

REPORT INFORMATION
  Report Type: 
  Country: None (occurrence: None)
  Receive Date: 20080601
  Receipt Date: 20080324
  Transmission Date: 20081010
  Serious: No
  Sender: FDA-Public Use
  Company Number: US200803005675

PATIENT
  Age: 53 Year
  Sex: Male

DRUGS (3)
  1. BYETTA [Suspect]
     Indication: DECREASED APPETITE
     Dosage: 10 UG, DAILY (1/D), SUBCUTANEOUS; 10 UG, 2/D, SUBCUTANEOUS
     Route: 058
     Dates: start: 20071201, end: 20080101
  2. BYETTA [Suspect]
     Indication: DECREASED APPETITE
     Dosage: 10 UG, DAILY (1/D), SUBCUTANEOUS; 10 UG, 2/D, SUBCUTANEOUS
     Route: 058
     Dates: start: 20080101
  3. LANTUS [Concomitant]

REACTIONS (1)
  - BLOOD GLUCOSE INCREASED [None]
